FAERS Safety Report 5053171-0 (Version None)
Quarter: 2006Q3

REPORT INFORMATION
  Report Type: 
  Country: None (occurrence: None)
  Receive Date: 20060711
  Receipt Date: 20060629
  Transmission Date: 20061208
  Serious: Yes (Hospitalization, Other)
  Sender: FDA-Public Use
  Company Number: HQWYE265725NOV03

PATIENT
  Age: 44 Year
  Sex: Male
  Weight: 69.2 kg

DRUGS (1)
  1. MYLOTARG [Suspect]
     Indication: ACUTE MYELOID LEUKAEMIA
     Dosage: 17.8 MG 1X PER 1 DAY; INTRAVENOUS
     Route: 042
     Dates: start: 20021126, end: 20021126

REACTIONS (3)
  - CENTRAL LINE INFECTION [None]
  - FEBRILE NEUTROPENIA [None]
  - RASH [None]
